FAERS Safety Report 15014039 (Version 1)
Quarter: 2018Q2

REPORT INFORMATION
  Report Type: Spontaneous
  Country: FR (occurrence: FR)
  Receive Date: 20180615
  Receipt Date: 20180615
  Transmission Date: 20180711
  Serious: Yes (Death, Hospitalization)
  Sender: FDA-Public Use
  Company Number: FR-TEVA-2018-FR-906044

PATIENT
  Age: 48 Year
  Sex: Male
  Weight: 56 kg

DRUGS (10)
  1. PRINCI B (CYANOCOBALAMIN\PYRIDOXINE HYDROCHLORIDE\THIAMINE) [Suspect]
     Active Substance: CYANOCOBALAMIN\PYRIDOXINE HYDROCHLORIDE\THIAMINE
     Indication: VITAMIN SUPPLEMENTATION
     Route: 048
     Dates: start: 20180215, end: 20180406
  2. ALDACTONE [Suspect]
     Active Substance: SPIRONOLACTONE
     Indication: CIRRHOSIS ALCOHOLIC
     Dosage: 25 MILLIGRAM DAILY;
     Route: 048
     Dates: start: 20180215, end: 20180226
  3. PANTOPRAZOLE [Suspect]
     Active Substance: PANTOPRAZOLE
     Indication: PRODUCT USED FOR UNKNOWN INDICATION
     Dosage: 20 MILLIGRAM DAILY;
     Route: 048
     Dates: start: 20180220, end: 20180406
  4. DOLIPRANE [Suspect]
     Active Substance: ACETAMINOPHEN
     Indication: PAIN MANAGEMENT
     Dosage: 2000 MILLIGRAM DAILY;
     Route: 048
     Dates: start: 20180215
  5. VIALEBEX [Suspect]
     Active Substance: ALBUMIN HUMAN
     Indication: ABDOMINAL CAVITY DRAINAGE
     Route: 042
     Dates: start: 20180223, end: 20180323
  6. DUPHALAC [Suspect]
     Active Substance: LACTULOSE
     Indication: CIRRHOSIS ALCOHOLIC
     Route: 048
     Dates: start: 20180220, end: 20180406
  7. NICOBION 500 MG, COMPRIM? PELLICUL? [Suspect]
     Active Substance: NIACINAMIDE
     Indication: VITAMIN SUPPLEMENTATION
     Dosage: 1000 MILLIGRAM DAILY;
     Route: 048
     Dates: start: 20180215, end: 20180406
  8. SPECIAFOLDINE 5 MG, COMPRIM? [Suspect]
     Active Substance: FOLIC ACID
     Indication: VITAMIN SUPPLEMENTATION
     Dosage: 15 MILLIGRAM DAILY;
     Route: 048
     Dates: start: 20180217, end: 20180406
  9. HYDROXYZINE [Suspect]
     Active Substance: HYDROXYZINE HYDROCHLORIDE
     Indication: PRODUCT USED FOR UNKNOWN INDICATION
     Route: 048
     Dates: start: 20180220, end: 20180406
  10. SPASFON (PHLOROGLUCINOL) [Suspect]
     Active Substance: PHLOROGLUCINOL
     Indication: PRODUCT USED FOR UNKNOWN INDICATION
     Dosage: 6 DOSAGE FORMS DAILY;
     Route: 048
     Dates: start: 2018, end: 20180406

REACTIONS (1)
  - Toxic epidermal necrolysis [Fatal]

NARRATIVE: CASE EVENT DATE: 20180326
